FAERS Safety Report 24283373 (Version 1)
Quarter: 2024Q3

REPORT INFORMATION
  Report Type: Spontaneous
  Country: US (occurrence: US)
  Receive Date: 20240904
  Receipt Date: 20240904
  Transmission Date: 20241016
  Serious: No
  Sender: JOHNSON AND JOHNSON
  Company Number: US-JNJFOC-20240865535

PATIENT

DRUGS (1)
  1. PEPCID AC [Suspect]
     Active Substance: FAMOTIDINE
     Indication: Oesophagitis
     Route: 065
     Dates: start: 2024

REACTIONS (7)
  - Reflux laryngitis [Unknown]
  - Anxiety [Unknown]
  - Feeding disorder [Unknown]
  - Dysgeusia [Unknown]
  - Panic attack [Unknown]
  - Dry mouth [Unknown]
  - Product use in unapproved indication [Unknown]

NARRATIVE: CASE EVENT DATE: 20240101
